FAERS Safety Report 8084081-2 (Version None)
Quarter: 2012Q1

REPORT INFORMATION
  Report Type: 
  Country: None (occurrence: None)
  Receive Date: 20120128
  Receipt Date: 20110214
  Transmission Date: 20120608
  Serious: No
  Sender: FDA-Public Use
  Company Number: US-ABBOTT-11P-163-0701539-00

PATIENT
  Age: 58 Year
  Sex: Female

DRUGS (10)
  1. SOME KIND OF MEDICATION [Concomitant]
     Indication: INSOMNIA
  2. SOY [Concomitant]
     Indication: PRODUCT USED FOR UNKNOWN INDICATION
  3. LIALDA [Concomitant]
     Indication: CROHN'S DISEASE
     Dosage: 4 TABLETS DAILY
  4. MERCAPTOPURINE [Concomitant]
     Indication: CROHN'S DISEASE
  5. GLUCOSAMINE [Concomitant]
     Indication: PRODUCT USED FOR UNKNOWN INDICATION
  6. MULTI-VITAMIN [Concomitant]
     Indication: PRODUCT USED FOR UNKNOWN INDICATION
  7. RECAPATIN [Concomitant]
     Indication: PRODUCT USED FOR UNKNOWN INDICATION
  8. HUMIRA [Suspect]
     Indication: CROHN'S DISEASE
     Dates: start: 20101213
  9. DIOVAN [Concomitant]
     Indication: HYPERTENSION
  10. XANAX [Concomitant]
     Indication: ANXIETY

REACTIONS (5)
  - IRRITABILITY [None]
  - INJECTION SITE HAEMATOMA [None]
  - DRY MOUTH [None]
  - NASOPHARYNGITIS [None]
  - INJECTION SITE PAIN [None]
